FAERS Safety Report 7380218-9 (Version None)
Quarter: 2011Q1

REPORT INFORMATION
  Report Type: 
  Country: None (occurrence: None)
  Receive Date: 20110329
  Receipt Date: 20110210
  Transmission Date: 20110831
  Serious: Yes (Hospitalization)
  Sender: FDA-Public Use
  Company Number: ES-AMGEN-UK358527

PATIENT
  Age: 3 Year
  Sex: Female

DRUGS (7)
  1. RANITIDINE [Concomitant]
     Dosage: 22 MG/DL, Q12H
     Dates: start: 20090205, end: 20091027
  2. GLUTAFERRO [Concomitant]
     Dosage: 30 MG, QD
     Dates: start: 20090108, end: 20090709
  3. RESONIUM CALCIUM [Concomitant]
     Dosage: 5 G, Q8H
     Dates: start: 20090304, end: 20090714
  4. CALCIUM CARBONATE [Concomitant]
     Dosage: 250 MG, Q12H
     Dates: start: 20090108, end: 20090714
  5. URSOCHOL [Concomitant]
     Dosage: 50 MG, Q8H
     Dates: start: 20090105, end: 20100630
  6. AMLODIPINE BESYLATE [Concomitant]
     Indication: HYPERTENSION
     Dosage: UNK
     Route: 048
     Dates: start: 20090709, end: 20091027
  7. DARBEPOETIN ALFA [Suspect]
     Indication: RENAL FAILURE CHRONIC
     Dosage: 10 A?G, QWK
     Route: 058
     Dates: start: 20090105

REACTIONS (1)
  - NEURITIS [None]
